FAERS Safety Report 15056623 (Version 2)
Quarter: 2018Q4

REPORT INFORMATION
  Report Type: Spontaneous
  Country: US (occurrence: US)
  Receive Date: 20180623
  Receipt Date: 20181207
  Transmission Date: 20190204
  Serious: No
  Sender: FDA-Public Use
  Company Number: US-JNJFOC-20180612422

PATIENT
  Sex: Male

DRUGS (1)
  1. ZYTIGA [Suspect]
     Active Substance: ABIRATERONE ACETATE
     Indication: PRODUCT USED FOR UNKNOWN INDICATION
     Dosage: STRENGTH 250 MG
     Route: 048
     Dates: end: 20181114

REACTIONS (5)
  - Feeling hot [Unknown]
  - Dermatitis [Unknown]
  - Arthralgia [Unknown]
  - Erythema [Unknown]
  - Myalgia [Unknown]
